FAERS Safety Report 6022318-1 (Version None)
Quarter: 2008Q4

REPORT INFORMATION
  Report Type: 
  Country: None (occurrence: None)
  Receive Date: 20081230
  Receipt Date: 20081219
  Transmission Date: 20090506
  Serious: Yes (Hospitalization)
  Sender: FDA-Public Use
  Company Number: US-BRISTOL-MYERS SQUIBB COMPANY-13204292

PATIENT
  Age: 50 Year
  Sex: Female
  Weight: 54 kg

DRUGS (3)
  1. CETUXIMAB [Suspect]
     Indication: HEAD AND NECK CANCER
     Dosage: INITIATED ON 28-OCT-2005.  TOTAL DOSE ADMINISTERED THIS COURSE = 2240 MG.
     Route: 042
     Dates: start: 20051123, end: 20051123
  2. CISPLATIN [Suspect]
     Indication: HEAD AND NECK CANCER
     Dosage: INITIATED ON 28-OCT-2005.  TOTAL DOSE ADMINISTERED THIS COURSE = 192 MG.
     Route: 042
     Dates: start: 20051123, end: 20051123
  3. RADIATION THERAPY [Suspect]
     Indication: HEAD AND NECK CANCER
     Dosage: INITIATED ON 28-OCT-2005.  TOTAL DOSE TO DATE: 36 GY VIA EXTERNAL BEAM/18 FRACTIONS/27 ELAPSED DAYS.
     Dates: start: 20051128, end: 20051128

REACTIONS (9)
  - ANOREXIA [None]
  - DEHYDRATION [None]
  - DRY MOUTH [None]
  - DYSPHAGIA [None]
  - HEADACHE [None]
  - NAUSEA [None]
  - NECK PAIN [None]
  - STOMATITIS [None]
  - VOMITING [None]
